FAERS Safety Report 12853864 (Version 1)
Quarter: 2016Q4

REPORT INFORMATION
  Report Type: Spontaneous
  Country: GB (occurrence: GB)
  Receive Date: 20161017
  Receipt Date: 20161017
  Transmission Date: 20170207
  Serious: Yes (Hospitalization)
  Sender: FDA-Public Use
  Company Number: GB-TEVA-702585ACC

PATIENT
  Age: 88 Year
  Sex: Female
  Weight: 60 kg

DRUGS (8)
  1. METOPROLOL. [Concomitant]
     Active Substance: METOPROLOL
  2. DONEPEZIL. [Suspect]
     Active Substance: DONEPEZIL
     Route: 048
  3. ASPIRIN. [Concomitant]
     Active Substance: ASPIRIN
  4. TRAZODONE [Concomitant]
     Active Substance: TRAZODONE HYDROCHLORIDE
  5. DONEPEZIL. [Suspect]
     Active Substance: DONEPEZIL
     Indication: DEMENTIA ALZHEIMER^S TYPE
     Dosage: DOSE INCREASED TO 10 MILLIGRAMS (MG). BUT 15MG WAS TAKEN AS 5MG DONEPEZIL WAS NOT REMOVED.
     Route: 048
     Dates: start: 20160901, end: 20160907
  6. BENDROFLUMETHIAZIDE [Concomitant]
     Active Substance: BENDROFLUMETHIAZIDE
  7. CANDESARTAN [Concomitant]
     Active Substance: CANDESARTAN
  8. SIMVASTATIN. [Concomitant]
     Active Substance: SIMVASTATIN

REACTIONS (4)
  - Fall [Unknown]
  - Drug dispensing error [Unknown]
  - Incorrect dose administered [Unknown]
  - Bradycardia [Recovered/Resolved]
